FAERS Safety Report 7324210-9 (Version None)
Quarter: 2011Q1

REPORT INFORMATION
  Report Type: 
  Country: None (occurrence: None)
  Receive Date: 20110202
  Receipt Date: 20101101
  Transmission Date: 20110831
  Serious: No
  Sender: FDA-Public Use
  Company Number: 2010-14360

PATIENT
  Age: 71 Year
  Sex: Male
  Weight: 53.9 kg

DRUGS (1)
  1. RAPAFLO [Suspect]
     Indication: DYSURIA
     Dosage: 1 TABLET DAILY, ORAL
     Route: 048
     Dates: start: 20100419, end: 20100801

REACTIONS (5)
  - LARYNGEAL OEDEMA [None]
  - RASH ERYTHEMATOUS [None]
  - THROAT IRRITATION [None]
  - DYSPHONIA [None]
  - RASH PRURITIC [None]
